FAERS Safety Report 4519284-4 (Version None)
Quarter: 2004Q4

REPORT INFORMATION
  Report Type: 
  Country: None (occurrence: None)
  Receive Date: 20041201
  Receipt Date: 20041118
  Transmission Date: 20050328
  Serious: Yes (Other)
  Sender: FDA-Public Use
  Company Number: 2004096215

PATIENT
  Sex: Female

DRUGS (1)
  1. AROMASIL (EXEMESTANE) [Suspect]
     Indication: BREAST CANCER
     Dosage: 25 MG (25 MG, 1 IN 1 D), ORAL
     Route: 048
     Dates: start: 20040101, end: 20040101

REACTIONS (2)
  - LIVER FUNCTION TEST ABNORMAL [None]
  - NECROSIS [None]
